FAERS Safety Report 11341137 (Version 1)
Quarter: 2015Q3

REPORT INFORMATION
  Report Type: Spontaneous
  Country: US (occurrence: None)
  Receive Date: 20150803
  Receipt Date: 20150803
  Transmission Date: 20151125
  Serious: Yes (Life-Threatening, Disabling)
  Sender: FDA-Public Use
  Company Number: None

PATIENT
  Age: 55 Year
  Sex: Female
  Weight: 56.7 kg

DRUGS (9)
  1. GABAPENTIN. [Concomitant]
     Active Substance: GABAPENTIN
  2. MECLIZINE [Concomitant]
     Active Substance: MECLIZINE\MECLIZINE HYDROCHLORIDE
  3. SELEGILINE [Suspect]
     Active Substance: SELEGILINE
     Dosage: 9AM, 5PM
     Route: 048
  4. ACETAZOLAMIDE. [Concomitant]
     Active Substance: ACETAZOLAMIDE
  5. OMEPRAZOLE DR [Concomitant]
     Active Substance: OMEPRAZOLE
  6. RESTASIS [Concomitant]
     Active Substance: CYCLOSPORINE
  7. VESICARE [Concomitant]
     Active Substance: SOLIFENACIN SUCCINATE
  8. POLYETHYLENE GLYCOL [Concomitant]
     Active Substance: POLYETHYLENE GLYCOLS
  9. LEVOTHYROXINE. [Concomitant]
     Active Substance: LEVOTHYROXINE

REACTIONS (23)
  - Brain herniation [None]
  - Binocular eye movement disorder [None]
  - Psychotic disorder [None]
  - Insomnia [None]
  - Suicidal ideation [None]
  - Dysarthria [None]
  - Abasia [None]
  - Bladder pain [None]
  - Sedation [None]
  - Infected skin ulcer [None]
  - Vertigo [None]
  - Tremor [None]
  - Impaired gastric emptying [None]
  - Nasal congestion [None]
  - Paraesthesia [None]
  - Cystitis [None]
  - Quality of life decreased [None]
  - Balance disorder [None]
  - Loss of consciousness [None]
  - Nystagmus [None]
  - Sleep apnoea syndrome [None]
  - Choreoathetosis [None]
  - Seizure [None]

NARRATIVE: CASE EVENT DATE: 20120918
